FAERS Safety Report 5749082-5 (Version None)
Quarter: 2008Q2

REPORT INFORMATION
  Report Type: 
  Country: None (occurrence: None)
  Receive Date: 20080527
  Receipt Date: 20080523
  Transmission Date: 20081010
  Serious: Yes (Other)
  Sender: FDA-Public Use
  Company Number: RO-BRISTOL-MYERS SQUIBB COMPANY-14202782

PATIENT
  Age: 19 Year
  Sex: Female

DRUGS (4)
  1. ZERIT [Suspect]
     Indication: ANTIRETROVIRAL THERAPY
     Dates: start: 20041101, end: 20050101
  2. 3TC [Suspect]
     Indication: ANTIRETROVIRAL THERAPY
     Dates: start: 20041101, end: 20050101
  3. SAQUINAVIR [Suspect]
     Indication: ANTIRETROVIRAL THERAPY
     Dates: start: 20041101, end: 20050101
  4. RITONAVIR [Suspect]
     Indication: ANTIRETROVIRAL THERAPY
     Dates: start: 20041101, end: 20050101

REACTIONS (3)
  - ARTERIOSCLEROSIS CORONARY ARTERY [None]
  - HYPERTENSION [None]
  - LIPODYSTROPHY ACQUIRED [None]
